FAERS Safety Report 15475013 (Version 1)
Quarter: 2018Q4

REPORT INFORMATION
  Report Type: Spontaneous
  Country: ES (occurrence: ES)
  Receive Date: 20181008
  Receipt Date: 20181008
  Transmission Date: 20190205
  Serious: Yes (Hospitalization, Other)
  Sender: FDA-Public Use
  Company Number: ES-ELI_LILLY_AND_COMPANY-ES201805008451

PATIENT
  Age: 54 Year
  Sex: Female

DRUGS (1)
  1. OLUMIANT [Suspect]
     Active Substance: BARICITINIB
     Indication: PRODUCT USED FOR UNKNOWN INDICATION
     Dosage: 4 MG, UNKNOWN
     Route: 065
     Dates: start: 201712

REACTIONS (9)
  - Paralysis [Unknown]
  - Epidural empyema [Recovering/Resolving]
  - Pharyngeal abscess [Unknown]
  - Septic embolus [Unknown]
  - Intervertebral discitis [Unknown]
  - Staphylococcal sepsis [Unknown]
  - Abscess [Unknown]
  - Psoas abscess [Unknown]
  - Quadriparesis [Unknown]

NARRATIVE: CASE EVENT DATE: 20180225
